FAERS Safety Report 18785965 (Version 1)
Quarter: 2021Q1

REPORT INFORMATION
  Report Type: Spontaneous
  Country: US (occurrence: US)
  Receive Date: 20210125
  Receipt Date: 20210125
  Transmission Date: 20210419
  Serious: Yes (Death)
  Sender: FDA-Public Use
  Company Number: None

PATIENT
  Age: 85 Year
  Sex: Female
  Weight: 40.8 kg

DRUGS (20)
  1. CLINDAMYCIN 600 MG IV Q6HRS [Concomitant]
     Dates: start: 20210119, end: 20210120
  2. BAMLANIVIMAB. [Suspect]
     Active Substance: BAMLANIVIMAB
     Indication: COVID-19
     Dosage: ?          OTHER FREQUENCY:X 1 DOSE;?
     Route: 042
     Dates: start: 20210122, end: 20210122
  3. ZINC SULFATE 220 MG PO ONCE DAILY [Concomitant]
     Dates: start: 20210121, end: 20210124
  4. CEFTRIAXONE 1 GM IV ONCE DAILY [Concomitant]
     Dates: start: 20210119, end: 20210124
  5. FUROSEMIDE 20 MG PO BID 9A, 5P [Concomitant]
     Dates: start: 20210122, end: 20210124
  6. DEXAMETHASONE 6 MG IV X 1 [Concomitant]
     Dates: start: 20210120, end: 20210120
  7. ATORVASTATIN 20 MG PO HS [Concomitant]
     Dates: start: 20210120, end: 20210124
  8. AMIODARONE 100 MG PO ONCE DAILY [Concomitant]
     Dates: start: 20210120, end: 20210124
  9. HYDRALAZINE 25 MG PO Q12HRS [Concomitant]
     Dates: start: 20210120, end: 20210124
  10. CARVEDILOL 12.5MG PO Q12HRS [Concomitant]
     Dates: start: 20210120, end: 20210125
  11. CHOLECALCIFEROL 1,000 UNITS PO ONCE DAILY [Concomitant]
     Dates: start: 20210120, end: 20210124
  12. CYANOCOBALAMIN 1000 MCG PO ONCE DAILY [Concomitant]
     Dates: start: 20210120, end: 20210124
  13. FOLIC ACID 1 MG PO ONCE DAILY [Concomitant]
     Dates: start: 20210120, end: 20210124
  14. POTASSIUM BICARBONATE 20 MEQ X 1 [Concomitant]
     Dates: start: 20210122, end: 20210122
  15. APIXABAN 2.5 MG PO Q12HRS [Concomitant]
     Dates: start: 20210120, end: 20210124
  16. ASCORBIC ACID 500 MG PO BID [Concomitant]
     Dates: start: 20210120, end: 20210124
  17. FAMOTIDINE 20 MG PO ONCE DAILY [Concomitant]
     Dates: start: 20210121, end: 20210124
  18. INSULIN LISPRO SQ W/MEALS + HS SLIDING SCALE [Concomitant]
     Dates: start: 20210120, end: 20210124
  19. METRONIDAZOLE 500MG PO Q8HRS [Concomitant]
     Dates: start: 20210119, end: 20210125
  20. POTASSIUM BICARBONATE 40 MEQ X 1 [Concomitant]
     Dates: start: 20210123, end: 20210123

REACTIONS (4)
  - Unresponsive to stimuli [None]
  - Oxygen saturation decreased [None]
  - Abdominal pain [None]
  - Cardiac arrest [None]

NARRATIVE: CASE EVENT DATE: 20210125
